FAERS Safety Report 6036403-1 (Version None)
Quarter: 2009Q1

REPORT INFORMATION
  Report Type: 
  Country: None (occurrence: None)
  Receive Date: 20090112
  Receipt Date: 20081231
  Transmission Date: 20090719
  Serious: Yes (Hospitalization, Other)
  Sender: FDA-Public Use
  Company Number: DSA_32974_2009

PATIENT
  Sex: Female

DRUGS (14)
  1. ISORDIL [Suspect]
     Indication: HYPERTENSION
     Dosage: 30 MG, ORAL
     Route: 048
     Dates: start: 20080923
  2. RIVAROXABAN 20 MG OR WARFARIN (1, 2.5 OR 5 MG ADJUSTED DOSE) [Suspect]
     Indication: PROPHYLAXIS
     Dosage: (DF, ORAL, ( DF ORAL), (DF, ORAL), (DF ORAL), (DF ORAL), (DF ORAL), (DF ORAL), (DF ORAL). DF ORAL)
     Route: 048
     Dates: start: 20061226, end: 20070311
  3. RIVAROXABAN 20 MG OR WARFARIN (1, 2.5 OR 5 MG ADJUSTED DOSE) [Suspect]
     Indication: PROPHYLAXIS
     Dosage: (DF, ORAL, ( DF ORAL), (DF, ORAL), (DF ORAL), (DF ORAL), (DF ORAL), (DF ORAL), (DF ORAL). DF ORAL)
     Route: 048
     Dates: start: 20070322, end: 20070505
  4. RIVAROXABAN 20 MG OR WARFARIN (1, 2.5 OR 5 MG ADJUSTED DOSE) [Suspect]
     Indication: PROPHYLAXIS
     Dosage: (DF, ORAL, ( DF ORAL), (DF, ORAL), (DF ORAL), (DF ORAL), (DF ORAL), (DF ORAL), (DF ORAL). DF ORAL)
     Route: 048
     Dates: start: 20070507, end: 20070710
  5. RIVAROXABAN 20 MG OR WARFARIN (1, 2.5 OR 5 MG ADJUSTED DOSE) [Suspect]
     Indication: PROPHYLAXIS
     Dosage: (DF, ORAL, ( DF ORAL), (DF, ORAL), (DF ORAL), (DF ORAL), (DF ORAL), (DF ORAL), (DF ORAL). DF ORAL)
     Route: 048
     Dates: start: 20070716, end: 20071201
  6. RIVAROXABAN 20 MG OR WARFARIN (1, 2.5 OR 5 MG ADJUSTED DOSE) [Suspect]
     Indication: PROPHYLAXIS
     Dosage: (DF, ORAL, ( DF ORAL), (DF, ORAL), (DF ORAL), (DF ORAL), (DF ORAL), (DF ORAL), (DF ORAL). DF ORAL)
     Route: 048
     Dates: start: 20071203, end: 20080728
  7. RIVAROXABAN 20 MG OR WARFARIN (1, 2.5 OR 5 MG ADJUSTED DOSE) [Suspect]
     Indication: PROPHYLAXIS
     Dosage: (DF, ORAL, ( DF ORAL), (DF, ORAL), (DF ORAL), (DF ORAL), (DF ORAL), (DF ORAL), (DF ORAL). DF ORAL)
     Route: 048
     Dates: start: 20080730, end: 20080824
  8. RIVAROXABAN 20 MG OR WARFARIN (1, 2.5 OR 5 MG ADJUSTED DOSE) [Suspect]
     Indication: PROPHYLAXIS
     Dosage: (DF, ORAL, ( DF ORAL), (DF, ORAL), (DF ORAL), (DF ORAL), (DF ORAL), (DF ORAL), (DF ORAL). DF ORAL)
     Route: 048
     Dates: start: 20080825, end: 20081116
  9. RIVAROXABAN 20 MG OR WARFARIN (1, 2.5 OR 5 MG ADJUSTED DOSE) [Suspect]
     Indication: PROPHYLAXIS
     Dosage: (DF, ORAL, ( DF ORAL), (DF, ORAL), (DF ORAL), (DF ORAL), (DF ORAL), (DF ORAL), (DF ORAL). DF ORAL)
     Route: 048
     Dates: start: 20081118, end: 20081205
  10. RIVAROXABAN 20 MG OR WARFARIN (1, 2.5 OR 5 MG ADJUSTED DOSE) [Suspect]
     Indication: PROPHYLAXIS
     Dosage: (DF, ORAL, ( DF ORAL), (DF, ORAL), (DF ORAL), (DF ORAL), (DF ORAL), (DF ORAL), (DF ORAL). DF ORAL)
     Route: 048
     Dates: start: 20081209
  11. COREG [Suspect]
     Indication: CORONARY ARTERY DISEASE
     Dosage: (25 MG, ORAL
     Route: 048
  12. COREG [Suspect]
     Indication: HYPERTENSION
     Dosage: (25 MG, ORAL
     Route: 048
  13. LASIX M (NOT SPECIFIED) [Suspect]
     Indication: CARDIAC FAILURE CONGESTIVE
     Dosage: (40 MG, ORAL)
     Route: 048
  14. PRINIVIL [Suspect]
     Indication: HYPERTENSION
     Dosage: (10 MG, ORAL)
     Route: 048

REACTIONS (3)
  - HYPOTENSION [None]
  - MULTIPLE DRUG OVERDOSE [None]
  - RENAL FAILURE ACUTE [None]
